FAERS Safety Report 8480161-8 (Version None)
Quarter: 2012Q2

REPORT INFORMATION
  Report Type: 
  Country: None (occurrence: None)
  Receive Date: 20120629
  Receipt Date: 20120622
  Transmission Date: 20120825
  Serious: Yes (Hospitalization, Other)
  Sender: FDA-Public Use
  Company Number: US-MERCK-1109USA03246

PATIENT
  Age: 59 Year
  Sex: Female
  Weight: 61 kg

DRUGS (13)
  1. FOSAMAX [Suspect]
     Route: 048
     Dates: start: 20011106, end: 20060420
  2. SYNTHROID [Concomitant]
     Indication: HYPOTHYROIDISM
     Route: 065
     Dates: start: 20050501, end: 20061101
  3. PIROXICAM [Concomitant]
     Indication: PAIN
     Route: 065
     Dates: start: 20050501, end: 20070201
  4. LEVOTHYROXINE SODIUM [Concomitant]
     Indication: HYPOTHYROIDISM
     Route: 065
     Dates: start: 20050501, end: 20061101
  5. FOSAMAX PLUS D [Suspect]
     Indication: OSTEOPENIA
     Route: 048
     Dates: start: 20060421, end: 20090924
  6. FOSAMAX [Suspect]
     Route: 048
     Dates: start: 20090901
  7. CYTOMEL [Concomitant]
     Indication: HYPOTHYROIDISM
     Route: 065
     Dates: start: 20011001
  8. VITAMIN D (UNSPECIFIED) [Concomitant]
     Route: 065
  9. CALCIUM (UNSPECIFIED) [Concomitant]
     Route: 065
  10. FOSAMAX [Suspect]
     Indication: OSTEOPENIA
     Route: 048
     Dates: start: 20090925, end: 20091219
  11. AMITRIPTYLINE HYDROCHLORIDE [Concomitant]
     Indication: PAIN
     Route: 065
     Dates: start: 20010701
  12. VITAMIN B (UNSPECIFIED) [Concomitant]
     Route: 065
  13. OMEGA-3 MARINE TRIGLYCERIDES [Concomitant]
     Route: 065

REACTIONS (11)
  - OSTEOPOROSIS [None]
  - FEMUR FRACTURE [None]
  - ARTHRITIS [None]
  - GASTROOESOPHAGEAL REFLUX DISEASE [None]
  - CHRONIC OBSTRUCTIVE PULMONARY DISEASE [None]
  - BLADDER CANCER [None]
  - MIGRAINE [None]
  - FIBROMYALGIA [None]
  - INFLAMMATION [None]
  - BURSITIS [None]
  - HYPERTENSION [None]
